FAERS Safety Report 13801654 (Version 1)
Quarter: 2017Q3

REPORT INFORMATION
  Report Type: Spontaneous
  Country: FR (occurrence: FR)
  Receive Date: 20170727
  Receipt Date: 20170727
  Transmission Date: 20171127
  Serious: Yes (Other)
  Sender: FDA-Public Use
  Company Number: FR-SA-2017SA136005

PATIENT
  Age: 51 Year
  Sex: Female

DRUGS (15)
  1. LOVENOX [Suspect]
     Active Substance: ENOXAPARIN SODIUM
     Indication: VENOUS THROMBOSIS
     Route: 058
     Dates: start: 20150213, end: 20150216
  2. DEPAKINE [Suspect]
     Active Substance: VALPROATE SODIUM
     Indication: EPILEPSY
     Dosage: 1 TABLET MORNING AND EVENING
     Route: 048
     Dates: start: 20150221
  3. KIVEXA [Concomitant]
     Active Substance: ABACAVIR SULFATE\LAMIVUDINE
     Route: 065
  4. COMBIVIR [Suspect]
     Active Substance: LAMIVUDINE\ZIDOVUDINE
     Indication: HIV TEST POSITIVE
     Dosage: LAMIVUDINE/ZIDOVUDINE: 150 MG/300 MG
     Route: 048
     Dates: start: 2007, end: 20150220
  5. KEPPRA [Suspect]
     Active Substance: LEVETIRACETAM
     Indication: EPILEPSY
     Dosage: 500 MG, FILM COATED TABLET; 2 DF (1 DF,2 IN 1 DAY(S))
     Route: 048
     Dates: start: 2008, end: 20150217
  6. KEPPRA [Suspect]
     Active Substance: LEVETIRACETAM
     Indication: EPILEPSY
     Route: 048
     Dates: start: 20150218, end: 20150222
  7. ZELITREX [Suspect]
     Active Substance: VALACYCLOVIR HYDROCHLORIDE
     Indication: PROPHYLAXIS
     Dosage: 500 MG, COATED TABLET; 2 DF (1 DF, 2 IN 1 DAY(S))
     Route: 048
     Dates: start: 2009
  8. DUROGESIC [Suspect]
     Active Substance: FENTANYL
     Indication: PAIN
     Dosage: 75 MICROGRAMS / HOUR (12.6 MG / 31.5 CM2); DAILY DOSE REPORTED AS: 0.5 DF (1 DF,1 IN 2 DAY(S))
     Route: 065
     Dates: start: 2009
  9. CALCIPARINE [Concomitant]
     Active Substance: HEPARIN CALCIUM
  10. TIVICAY [Concomitant]
     Active Substance: DOLUTEGRAVIR SODIUM
     Route: 065
  11. DEPAKINE [Suspect]
     Active Substance: VALPROATE SODIUM
     Indication: EPILEPSY
     Dosage: 500MG: 1/2 - 0 -1/2 FOR 3 DAYS
     Route: 048
     Dates: start: 20150219, end: 20150221
  12. CLAMOXYL [Suspect]
     Active Substance: AMOXICILLIN\CLAVULANIC ACID
     Indication: LUNG DISORDER
     Dosage: 1 G, DISPERSIBLE TABLET;3 DF (1 DF, 3 IN 1 DAY(S))
     Route: 048
     Dates: start: 20150215, end: 20150222
  13. RIVOTRIL [Suspect]
     Active Substance: CLONAZEPAM
     Indication: EPILEPSY
     Dosage: 2 MG, QUADRISECTED TABLET; DOSE: 1 DF IN 1 DAY
     Route: 048
     Dates: start: 2008
  14. FUNGIZONE [Suspect]
     Active Substance: AMPHOTERICIN B
     Indication: ORAL CANDIDIASIS
     Route: 048
     Dates: start: 20150213, end: 20150226
  15. EDURANT [Concomitant]
     Active Substance: RILPIVIRINE HYDROCHLORIDE

REACTIONS (3)
  - Neuropathy peripheral [Not Recovered/Not Resolved]
  - Hemianopia homonymous [Not Recovered/Not Resolved]
  - Visual acuity reduced [Not Recovered/Not Resolved]

NARRATIVE: CASE EVENT DATE: 20150226
